FAERS Safety Report 16119162 (Version 2)
Quarter: 2019Q1

REPORT INFORMATION
  Report Type: Spontaneous
  Country: US (occurrence: US)
  Receive Date: 20190326
  Receipt Date: 20190328
  Transmission Date: 20190418
  Serious: Yes (Hospitalization, Other)
  Sender: FDA-Public Use
  Company Number: US-ALLERGAN-1912413US

PATIENT
  Sex: Male

DRUGS (1)
  1. BOTOX [Suspect]
     Active Substance: ONABOTULINUMTOXINA
     Indication: MIGRAINE
     Dosage: UNK, SINGLE
     Route: 030
     Dates: start: 20170405, end: 20170405

REACTIONS (7)
  - Botulism [Unknown]
  - Musculoskeletal pain [Recovered/Resolved]
  - Migraine [Unknown]
  - Urinary incontinence [Recovered/Resolved]
  - Dyspnoea [Recovered/Resolved]
  - Paralysis [Recovered/Resolved]
  - Arthralgia [Recovered/Resolved]

NARRATIVE: CASE EVENT DATE: 201704
